FAERS Safety Report 13029312 (Version 1)
Quarter: 2016Q4

REPORT INFORMATION
  Report Type: Spontaneous
  Country: BE (occurrence: BE)
  Receive Date: 20161215
  Receipt Date: 20161215
  Transmission Date: 20170207
  Serious: Yes (Other)
  Sender: FDA-Public Use
  Company Number: BE-AMGEN-BELSP2016149448

PATIENT
  Age: 56 Year
  Sex: Female
  Weight: 52 kg

DRUGS (1)
  1. ENBREL [Suspect]
     Active Substance: ETANERCEPT
     Indication: RHEUMATOID ARTHRITIS
     Dosage: 50 MG, WEEKLY
     Route: 058
     Dates: start: 20101214, end: 20161028

REACTIONS (2)
  - Episcleritis [Recovering/Resolving]
  - Scleritis [Recovering/Resolving]

NARRATIVE: CASE EVENT DATE: 2015
